FAERS Safety Report 18989462 (Version 9)
Quarter: 2024Q2

REPORT INFORMATION
  Report Type: Spontaneous
  Country: BR (occurrence: BR)
  Receive Date: 20210310
  Receipt Date: 20240520
  Transmission Date: 20240716
  Serious: Yes (Other)
  Sender: FDA-Public Use
  Company Number: BR-BIOGEN-2021BI00987588

PATIENT
  Age: 47 Year
  Sex: Male
  Weight: 79 kg

DRUGS (10)
  1. TYSABRI [Suspect]
     Active Substance: NATALIZUMAB
     Indication: Multiple sclerosis
     Route: 050
  2. TYSABRI [Suspect]
     Active Substance: NATALIZUMAB
     Route: 050
     Dates: start: 202001
  3. TYSABRI [Suspect]
     Active Substance: NATALIZUMAB
     Route: 050
     Dates: start: 2018
  4. TYSABRI [Suspect]
     Active Substance: NATALIZUMAB
     Dosage: 15ML / 20MGL
     Route: 050
     Dates: start: 20180719
  5. TYSABRI [Suspect]
     Active Substance: NATALIZUMAB
     Route: 050
     Dates: start: 201808
  6. GABAPENTIN [Concomitant]
     Active Substance: GABAPENTIN
     Indication: Intervertebral disc protrusion
     Route: 050
  7. CALCIUM [Concomitant]
     Active Substance: CALCIUM
     Indication: Bone disorder
     Route: 050
  8. VITAMIN D [Concomitant]
     Active Substance: VITAMIN D NOS
     Indication: Multiple sclerosis
     Route: 050
  9. QUETIAPINE [Concomitant]
     Active Substance: QUETIAPINE
     Indication: Insomnia
     Route: 050
     Dates: start: 2019
  10. DEXA-CITONEURIN (DEXAMETHASONE, CYANOCOBALAMIN, PYRIDOXINE, THIAMINE) [Concomitant]
     Indication: Intervertebral disc protrusion
     Route: 050

REACTIONS (10)
  - Blindness [Not Recovered/Not Resolved]
  - Spinal cord injury [Not Recovered/Not Resolved]
  - Drug ineffective [Not Recovered/Not Resolved]
  - Decreased immune responsiveness [Unknown]
  - Insomnia [Not Recovered/Not Resolved]
  - Pain [Not Recovered/Not Resolved]
  - Intervertebral disc protrusion [Not Recovered/Not Resolved]
  - Gait inability [Not Recovered/Not Resolved]
  - Multiple sclerosis relapse [Not Recovered/Not Resolved]
  - Vitamin D decreased [Unknown]

NARRATIVE: CASE EVENT DATE: 20200501
